FAERS Safety Report 22824488 (Version 2)
Quarter: 2023Q4

REPORT INFORMATION
  Report Type: Spontaneous
  Country: CA (occurrence: CA)
  Receive Date: 20230815
  Receipt Date: 20231017
  Transmission Date: 20240110
  Serious: Yes (Other)
  Sender: FDA-Public Use
  Company Number: CA-009507513-2308CAN004549

PATIENT
  Age: 78 Year
  Sex: Male
  Weight: 58 kg

DRUGS (1)
  1. BRIDION [Suspect]
     Active Substance: SUGAMMADEX
     Dosage: (2 ML AND 5 ML SINGLE USE VIALS) 200 MILLIGRAM, ONCE
     Route: 042

REACTIONS (3)
  - Circulatory collapse [Recovered/Resolved]
  - Hypotension [Recovered/Resolved]
  - Tryptase increased [Recovered/Resolved]
